FAERS Safety Report 7245073-6 (Version None)
Quarter: 2011Q1

REPORT INFORMATION
  Report Type: 
  Country: None (occurrence: None)
  Receive Date: 20110126
  Receipt Date: 20110119
  Transmission Date: 20110831
  Serious: Yes (Other)
  Sender: FDA-Public Use
  Company Number: NL-BAXTER-2010BH030931

PATIENT
  Age: 60 Year
  Sex: Female

DRUGS (22)
  1. GAMMAGARD LIQUID [Suspect]
     Route: 042
     Dates: start: 20101223, end: 20101223
  2. TIOTROPIUM [Concomitant]
  3. NASONEX [Concomitant]
  4. AERIUS [Concomitant]
  5. GAMMAGARD LIQUID [Suspect]
     Indication: DECREASED IMMUNE RESPONSIVENESS
     Route: 042
     Dates: start: 20101209, end: 20101209
  6. DOMPERIDONE [Concomitant]
  7. CINNARIZINE [Concomitant]
  8. RANITIDINE [Concomitant]
  9. SOTALOL [Concomitant]
  10. QVAR 40 [Concomitant]
  11. OMEPRAZOLE [Concomitant]
  12. LIPITOR [Concomitant]
  13. DYDROGESTERONE TAB [Concomitant]
  14. METAMUCIL-2 [Concomitant]
  15. FLUCONAZOLE [Concomitant]
  16. AMITRIPTYLINE [Concomitant]
  17. GAMMAGARD LIQUID [Suspect]
     Route: 042
     Dates: start: 20101209, end: 20101209
  18. ESTRADIOL [Concomitant]
  19. GAMMAGARD LIQUID [Suspect]
     Route: 042
     Dates: start: 20101223, end: 20101223
  20. GAMMAGARD LIQUID [Suspect]
     Route: 042
     Dates: start: 20100413
  21. BUMETANIDE [Concomitant]
  22. FORADIL [Concomitant]

REACTIONS (2)
  - BRONCHITIS [None]
  - PYREXIA [None]
